FAERS Safety Report 4852487-8 (Version None)
Quarter: 2005Q4

REPORT INFORMATION
  Report Type: 
  Country: None (occurrence: None)
  Receive Date: 20051130
  Receipt Date: 20050825
  Transmission Date: 20060501
  Serious: No
  Sender: FDA-Public Use
  Company Number: WAES 0405USA01540

PATIENT
  Age: 68 Year
  Sex: Female

DRUGS (5)
  1. ZETIA [Suspect]
     Indication: BLOOD CHOLESTEROL INCREASED
     Dosage: 10 MG/DAILY/PO   ; PO
     Route: 048
     Dates: start: 20031201, end: 20050101
  2. ZETIA [Suspect]
     Indication: BLOOD CHOLESTEROL INCREASED
     Dosage: 10 MG/DAILY/PO   ; PO
     Route: 048
     Dates: start: 20050101, end: 20050101
  3. COUMADIN [Concomitant]
  4. LOPRESSOR [Concomitant]
  5. NITROGLYCERIN [Concomitant]

REACTIONS (3)
  - BALANCE DISORDER [None]
  - MYALGIA [None]
  - WEIGHT INCREASED [None]
